FAERS Safety Report 4647833-4 (Version None)
Quarter: 2005Q2

REPORT INFORMATION
  Report Type: 
  Country: None (occurrence: None)
  Receive Date: 20050428
  Receipt Date: 20041203
  Transmission Date: 20051028
  Serious: Yes (Hospitalization)
  Sender: FDA-Public Use
  Company Number: GB-GLAXOSMITHKLINE-B0359442A

PATIENT
  Age: 30 Year
  Sex: Female

DRUGS (6)
  1. PAROXETINE HCL [Suspect]
     Indication: DEPRESSION
     Route: 048
     Dates: start: 20001103, end: 20020101
  2. BUSPIRONE HCL [Concomitant]
     Route: 065
     Dates: start: 20010306, end: 20010713
  3. TEMAZEPAM [Concomitant]
     Route: 065
     Dates: start: 20010306, end: 20010713
  4. VENLAFAXINE [Concomitant]
     Dosage: 75MG PER DAY
     Route: 065
     Dates: start: 20010806, end: 20020601
  5. ZOLPIDEM TARTRATE [Concomitant]
     Dosage: 10MCG AT NIGHT
     Route: 065
     Dates: start: 20010806
  6. FLUOXETINE [Concomitant]
     Route: 065
     Dates: start: 20030701

REACTIONS (4)
  - CRYING [None]
  - ILL-DEFINED DISORDER [None]
  - OVERDOSE [None]
  - SUICIDE ATTEMPT [None]
